FAERS Safety Report 7747576-4 (Version None)
Quarter: 2011Q3

REPORT INFORMATION
  Report Type: 
  Country: None (occurrence: None)
  Receive Date: 20110913
  Receipt Date: 20110831
  Transmission Date: 20111222
  Serious: Yes (Death)
  Sender: FDA-Public Use
  Company Number: LT-ELI_LILLY_AND_COMPANY-LT201109000173

PATIENT
  Sex: Female

DRUGS (4)
  1. LORAFEN [Concomitant]
     Dosage: 5 MG, UNK
     Route: 048
  2. OLANZAPINE [Suspect]
     Indication: SCHIZOPHRENIA
     Dosage: 210 MG, 2/W
     Route: 030
     Dates: start: 20110101
  3. OLANZAPINE [Suspect]
     Dosage: 405 MG, MONTHLY (1/M)
     Route: 030
     Dates: start: 20110301
  4. OLANZAPINE [Suspect]
     Dosage: 300 MG, 2/W
     Dates: start: 20110701, end: 20110710

REACTIONS (3)
  - DRUG EFFECT DECREASED [None]
  - CONDITION AGGRAVATED [None]
  - COMPLETED SUICIDE [None]
